FAERS Safety Report 12708886 (Version 1)
Quarter: 2016Q3

REPORT INFORMATION
  Report Type: Spontaneous
  Country: US (occurrence: US)
  Receive Date: 20160901
  Receipt Date: 20160901
  Transmission Date: 20161109
  Serious: No
  Sender: FDA-Public Use
  Company Number: US-JAZZ-2016-US-008342

PATIENT
  Age: 30 Year
  Sex: Female

DRUGS (5)
  1. XYREM [Suspect]
     Active Substance: SODIUM OXYBATE
     Indication: NARCOLEPSY
     Dosage: 2.25 G, BID
     Route: 048
     Dates: start: 201604, end: 201604
  2. XYREM [Suspect]
     Active Substance: SODIUM OXYBATE
     Dosage: 3 G, BID
     Route: 048
     Dates: start: 201604, end: 20160424
  3. MARIJUANA [Concomitant]
     Active Substance: CANNABIS SATIVA SUBSP. INDICA TOP
  4. XYREM [Suspect]
     Active Substance: SODIUM OXYBATE
     Dosage: 3 G, QD
     Route: 048
     Dates: start: 20160425, end: 20160425
  5. PROVIGIL [Concomitant]
     Active Substance: MODAFINIL

REACTIONS (6)
  - Nausea [Recovering/Resolving]
  - Influenza [Unknown]
  - Decreased appetite [Recovering/Resolving]
  - Dehydration [Recovering/Resolving]
  - Retching [Recovering/Resolving]
  - Abdominal pain upper [Recovering/Resolving]

NARRATIVE: CASE EVENT DATE: 201604
